FAERS Safety Report 17522076 (Version 1)
Quarter: 2020Q1

REPORT INFORMATION
  Report Type: Spontaneous
  Country: JP (occurrence: JP)
  Receive Date: 20200310
  Receipt Date: 20200310
  Transmission Date: 20200409
  Serious: Yes (Hospitalization)
  Sender: FDA-Public Use
  Company Number: NVSC2020JP063044

PATIENT
  Age: 50 Year
  Sex: Female

DRUGS (2)
  1. VIDARABINE [Suspect]
     Active Substance: VIDARABINE
     Indication: HERPES ZOSTER
     Dosage: UNK
     Route: 061
  2. FAMVIR [Suspect]
     Active Substance: FAMCICLOVIR
     Indication: HERPES ZOSTER
     Dosage: 1500 MG, QID
     Route: 048

REACTIONS (1)
  - Cerebral infarction [Recovering/Resolving]
